FAERS Safety Report 6441097-7 (Version None)
Quarter: 2009Q4

REPORT INFORMATION
  Report Type: 
  Country: None (occurrence: None)
  Receive Date: 20091116
  Receipt Date: 20091111
  Transmission Date: 20100525
  Serious: Yes (Hospitalization)
  Sender: FDA-Public Use
  Company Number: ES-ROCHE-668075

PATIENT
  Age: 70 Year
  Sex: Male

DRUGS (1)
  1. XELODA [Suspect]
     Indication: RECTOSIGMOID CANCER
     Route: 048
     Dates: start: 20080901, end: 20081101

REACTIONS (5)
  - DISORIENTATION [None]
  - ENCEPHALITIS [None]
  - EPILEPSY [None]
  - SOMNOLENCE [None]
  - SYNCOPE [None]
